FAERS Safety Report 9422537 (Version 1)
Quarter: 2013Q3

REPORT INFORMATION
  Report Type: Spontaneous
  Country: US (occurrence: None)
  Receive Date: 20130725
  Receipt Date: 20130725
  Transmission Date: 20140515
  Serious: No
  Sender: FDA-Public Use
  Company Number: None

PATIENT
  Age: 41 Year
  Sex: Male

DRUGS (10)
  1. SULFAMETHOXAZOLE W/TRIMETHOPRIM [Suspect]
     Dates: start: 20120506, end: 20120511
  2. DOCUSATE [Concomitant]
  3. GLUCOSE [Concomitant]
  4. INSULIN GLARGINE [Concomitant]
  5. MORPHINE [Concomitant]
  6. ONDANSETRON HYDROCHLORIDE [Concomitant]
  7. PARACETAMOL [Concomitant]
  8. SODIUM CHLORIDE [Concomitant]
  9. URSODEOXYCHOLIC ACID [Concomitant]
  10. VITAMIN NOS [Concomitant]

REACTIONS (1)
  - Cholestasis [None]
